FAERS Safety Report 4503595-2 (Version None)
Quarter: 2004Q4

REPORT INFORMATION
  Report Type: 
  Country: None (occurrence: None)
  Receive Date: 20041115
  Receipt Date: 20041102
  Transmission Date: 20050328
  Serious: Yes (Other)
  Sender: FDA-Public Use
  Company Number: 102803ISR

PATIENT
  Age: 60 Year
  Sex: Male
  Weight: 80 kg

DRUGS (4)
  1. COPAXONE [Suspect]
     Indication: PRIMARY PROGRESSIVE MULTIPLE SCLEROSIS
     Dosage: 20 MILLIGRAM DAILY SUBCUTANEOUS
     Route: 058
     Dates: start: 20001003, end: 20030116
  2. OXYBUTYNIN [Concomitant]
  3. SILDENAFIL [Concomitant]
  4. SENNA [Concomitant]

REACTIONS (5)
  - ASTHENIA [None]
  - ATAXIA [None]
  - GAIT SPASTIC [None]
  - HYPERTONIA [None]
  - MYELODYSPLASTIC SYNDROME [None]
